FAERS Safety Report 9263501 (Version 1)
Quarter: 2013Q2

REPORT INFORMATION
  Report Type: Spontaneous
  Country: US (occurrence: US)
  Receive Date: 20130430
  Receipt Date: 20130430
  Transmission Date: 20140414
  Serious: No
  Sender: FDA-Public Use
  Company Number: US-ABBOTT-12P-163-0940305-00

PATIENT
  Age: 57 Year
  Sex: Female
  Weight: 61.29 kg

DRUGS (10)
  1. CREON 24 [Suspect]
     Indication: PANCREATIC ENZYMES DECREASED
     Dosage: 1 CAP WITH EVERY MEAL
     Dates: start: 201205, end: 20120524
  2. OXYCODONE [Concomitant]
     Indication: PAIN
  3. SOMA [Concomitant]
     Indication: PAIN
  4. VALIUM [Concomitant]
     Indication: PRODUCT USED FOR UNKNOWN INDICATION
  5. FIORINOL [Concomitant]
     Indication: MIGRAINE
  6. BENADRYL [Concomitant]
     Indication: PRODUCT USED FOR UNKNOWN INDICATION
  7. SUDAFEDRINE [Concomitant]
     Indication: PRODUCT USED FOR UNKNOWN INDICATION
  8. GAS X [Concomitant]
     Indication: PRODUCT USED FOR UNKNOWN INDICATION
  9. LIDODERM PAIN PATCH [Concomitant]
     Indication: PAIN
  10. SALONPAS OTC PATCH [Concomitant]
     Indication: PAIN

REACTIONS (6)
  - Dyspnoea [Recovered/Resolved]
  - Abdominal pain [Recovering/Resolving]
  - Nausea [Recovering/Resolving]
  - Constipation [Not Recovered/Not Resolved]
  - Abdominal pain [Not Recovered/Not Resolved]
  - Heart rate irregular [Not Recovered/Not Resolved]
